FAERS Safety Report 5031586-4 (Version None)
Quarter: 2006Q2

REPORT INFORMATION
  Report Type: 
  Country: None (occurrence: None)
  Receive Date: 20060621
  Receipt Date: 20060615
  Transmission Date: 20061013
  Serious: Yes (Hospitalization)
  Sender: FDA-Public Use
  Company Number: FR-GLAXOSMITHKLINE-B0427811A

PATIENT
  Age: 22 Month

DRUGS (3)
  1. ZOVIRAX [Suspect]
     Indication: PROPHYLAXIS
     Dosage: 200MG FIVE TIMES PER DAY
     Route: 048
     Dates: start: 20050101, end: 20060101
  2. BACTRIM [Suspect]
     Indication: PROPHYLAXIS
     Dates: start: 20050101, end: 20060101
  3. CYCLOSPORINE [Concomitant]
     Indication: PROPHYLAXIS AGAINST TRANSPLANT REJECTION
     Dates: start: 20050101

REACTIONS (2)
  - AGRANULOCYTOSIS [None]
  - PYREXIA [None]
